FAERS Safety Report 11308060 (Version 1)
Quarter: 2015Q3

REPORT INFORMATION
  Report Type: Report from Study
  Country: DK (occurrence: DK)
  Receive Date: 20150724
  Receipt Date: 20150724
  Transmission Date: 20151125
  Serious: Yes (Death)
  Sender: FDA-Public Use
  Company Number: DK-ACCORD-032509

PATIENT
  Age: 20 Year
  Sex: Male
  Weight: 67 kg

DRUGS (5)
  1. CHLORPROTHIXENE [Concomitant]
     Active Substance: CHLORPROTHIXENE
  2. ETHANOL [Concomitant]
     Active Substance: ALCOHOL
  3. QUETIAPINE [Suspect]
     Active Substance: QUETIAPINE
  4. CITALOPRAM [Concomitant]
     Active Substance: CITALOPRAM HYDROBROMIDE
  5. ZOPICLONE [Concomitant]
     Active Substance: ZOPICLONE

REACTIONS (2)
  - Completed suicide [Fatal]
  - Overdose [Fatal]
